FAERS Safety Report 10083264 (Version 1)
Quarter: 2014Q2

REPORT INFORMATION
  Report Type: Spontaneous
  Country: US (occurrence: None)
  Receive Date: 20140415
  Receipt Date: 20140415
  Transmission Date: 20141212
  Serious: Yes (Congenital Anomaly)
  Sender: FDA-Public Use
  Company Number: None

PATIENT
  Age: 29 Year
  Sex: Female
  Weight: 57.61 kg

DRUGS (2)
  1. ONDANSETRON HCL [Suspect]
     Indication: NAUSEA
     Dosage: 4 MG, ONCE DAILY, TAKEN BY MOUTH
     Route: 048
  2. ONDANSETRON HCL [Suspect]
     Indication: PREGNANCY
     Dosage: 4 MG, ONCE DAILY, TAKEN BY MOUTH
     Route: 048

REACTIONS (3)
  - Maternal exposure during pregnancy [None]
  - Craniosynostosis [None]
  - Maternal drugs affecting foetus [None]
